FAERS Safety Report 6567810-6 (Version None)
Quarter: 2010Q1

REPORT INFORMATION
  Report Type: 
  Country: None (occurrence: None)
  Receive Date: 20100203
  Receipt Date: 20100122
  Transmission Date: 20100710
  Serious: Yes (Hospitalization)
  Sender: FDA-Public Use
  Company Number: US-JNJFOC-20100111134

PATIENT
  Age: 31 Year
  Sex: Male
  Weight: 86.18 kg

DRUGS (3)
  1. TYLENOL (CAPLET) [Suspect]
     Indication: HEADACHE
     Route: 048
  2. TYLENOL (CAPLET) [Suspect]
     Indication: BACK PAIN
     Route: 048
  3. ASACOL [Concomitant]
     Indication: COLITIS ULCERATIVE

REACTIONS (6)
  - DEHYDRATION [None]
  - DIARRHOEA [None]
  - PANCREATITIS [None]
  - PRODUCT QUALITY ISSUE [None]
  - RENAL FAILURE [None]
  - VOMITING [None]
